FAERS Safety Report 8745741 (Version 2)
Quarter: 2012Q4

REPORT INFORMATION
  Report Type: 
  Country: PL (occurrence: PL)
  Receive Date: 20120827
  Receipt Date: 20121207
  Transmission Date: 20130627
  Serious: Yes (Death, Other)
  Sender: FDA-Public Use
  Company Number: PL-BIOGENIDEC-2012BI033247

PATIENT
  Age: 29 Year
  Sex: Male

DRUGS (6)
  1. TYSABRI [Suspect]
     Indication: RELAPSING-REMITTING MULTIPLE SCLEROSIS
     Route: 042
     Dates: start: 2009
  2. TYSABRI [Suspect]
     Indication: RELAPSING-REMITTING MULTIPLE SCLEROSIS
     Route: 042
     Dates: start: 20110716, end: 20120721
  3. TRITTICO CR [Concomitant]
  4. MYOPAM [Concomitant]
     Dates: start: 201107
  5. CONCOR COR [Concomitant]
     Dates: start: 2011
  6. KALIPOZ PROLONGATUM [Concomitant]
     Dates: start: 2011

REACTIONS (2)
  - Respiratory failure [Fatal]
  - Pneumonia [Unknown]
